FAERS Safety Report 6077059-1 (Version None)
Quarter: 2009Q1

REPORT INFORMATION
  Report Type: 
  Country: None (occurrence: None)
  Receive Date: 20090212
  Receipt Date: 20090212
  Transmission Date: 20090719
  Serious: Yes (Hospitalization)
  Sender: FDA-Public Use
  Company Number: None

PATIENT
  Sex: Male
  Weight: 87 kg

DRUGS (11)
  1. CYTARABINE [Suspect]
     Dosage: 3660 MG
  2. DEXAMETHASONE [Suspect]
     Dosage: 90 MG
  3. ETOPOSIDE [Suspect]
     Dosage: 290 MG
  4. G-CSF (FILGRASTIM, AMGEN) [Suspect]
     Dosage: 5160 MG
  5. IFOSFAMIDE [Suspect]
     Dosage: 7250 MG
  6. LEUCOVORIN CALCIUM [Suspect]
     Dosage: 175 MG
  7. MESNA [Suspect]
     Dosage: 5400 MG
  8. METHOTREXATE [Suspect]
     Dosage: 2725 MG
  9. RITUXIMAB (MOAB C2B8 ANTI CD20, CHIMERIC) [Suspect]
     Dosage: 700 MG
  10. VINCRISTINE SULFATE [Suspect]
     Dosage: 2 MG
  11. . [Concomitant]

REACTIONS (7)
  - CLOSTRIDIUM DIFFICILE COLITIS [None]
  - CONFUSIONAL STATE [None]
  - HAEMOGLOBIN DECREASED [None]
  - MUCOSAL INFLAMMATION [None]
  - NO THERAPEUTIC RESPONSE [None]
  - RENAL FAILURE ACUTE [None]
  - SEPSIS [None]
